FAERS Safety Report 4447922-3 (Version None)
Quarter: 2004Q3

REPORT INFORMATION
  Report Type: 
  Country: None (occurrence: None)
  Receive Date: 20040909
  Receipt Date: 20040909
  Transmission Date: 20050211
  Serious: Yes (Other)
  Sender: FDA-Public Use
  Company Number: None

PATIENT
  Age: 31 Year
  Sex: Female
  Weight: 72.5755 kg

DRUGS (2)
  1. ZYPREXA [Suspect]
     Indication: BIPOLAR DISORDER
     Dosage: 7.5MG  1XDAY  ORAL
     Route: 048
     Dates: start: 20031001, end: 20040701
  2. EFFEXOR XR [Concomitant]

REACTIONS (3)
  - BLOOD GLUCOSE INCREASED [None]
  - SKIN STRIAE [None]
  - WEIGHT INCREASED [None]
